FAERS Safety Report 22264732 (Version 2)
Quarter: 2023Q2

REPORT INFORMATION
  Report Type: Spontaneous
  Country: US (occurrence: None)
  Receive Date: 20230428
  Receipt Date: 20230428
  Transmission Date: 20230721
  Serious: No
  Sender: FDA-Public Use
  Company Number: 2022A234288

PATIENT
  Sex: Male

DRUGS (1)
  1. IMFINZI [Suspect]
     Active Substance: DURVALUMAB
     Indication: Lung neoplasm malignant
     Dosage: THEN EVERY 28 DAYS FOR 12 CYCLES500.0MG/ML AS REQUIRED
     Route: 042
     Dates: start: 20220116

REACTIONS (1)
  - Abdominal pain upper [Recovering/Resolving]
